FAERS Safety Report 8853076 (Version 2)
Quarter: 2012Q4

REPORT INFORMATION
  Report Type: Report from Study
  Country: CA (occurrence: CA)
  Receive Date: 20121022
  Receipt Date: 20121221
  Transmission Date: 20130627
  Serious: Yes (Hospitalization, Other)
  Sender: FDA-Public Use
  Company Number: CA-ROCHE-1041781

PATIENT
  Age: 42 None
  Sex: Female
  Weight: 178 kg

DRUGS (13)
  1. TOCILIZUMAB [Suspect]
     Indication: RHEUMATOID ARTHRITIS
     Route: 042
     Dates: start: 20111205
  2. METHOTREXATE [Concomitant]
  3. PREDNISONE [Concomitant]
  4. PLAQUENIL [Concomitant]
  5. CALCIUM [Concomitant]
  6. VITAMIN D [Concomitant]
  7. FOLIC ACID [Concomitant]
  8. AMITRIPTYLINE [Concomitant]
  9. OMEPRAZOLE [Concomitant]
     Route: 048
  10. RISEDRONATE [Concomitant]
  11. FENTANYL [Concomitant]
     Indication: PAIN
     Route: 065
  12. GABAPENTIN [Concomitant]
     Indication: PAIN
     Route: 048
  13. BACLOFEN [Concomitant]
     Indication: MUSCLE SPASMS
     Route: 065

REACTIONS (7)
  - Rheumatoid arthritis [Recovered/Resolved]
  - Rheumatoid arthritis [Recovered/Resolved]
  - Dizziness [Not Recovered/Not Resolved]
  - Thyroid neoplasm [Not Recovered/Not Resolved]
  - Hypertension [Unknown]
  - Hypotension [Unknown]
  - Thyroid neoplasm [Not Recovered/Not Resolved]
